FAERS Safety Report 24269027 (Version 1)
Quarter: 2024Q3

REPORT INFORMATION
  Report Type: Spontaneous
  Country: GB (occurrence: GB)
  Receive Date: 20240830
  Receipt Date: 20240830
  Transmission Date: 20241017
  Serious: Yes (Other)
  Sender: PFIZER
  Company Number: GB-PFIZER INC-202400245573

PATIENT
  Sex: Male

DRUGS (1)
  1. GENOTROPIN [Suspect]
     Active Substance: SOMATROPIN
     Dosage: 3.3 MG, DAILY

REACTIONS (6)
  - Prescription drug used without a prescription [Unknown]
  - Poor quality product administered [Unknown]
  - Hyperthyroidism [Unknown]
  - Haemoptysis [Unknown]
  - Polyuria [Unknown]
  - Weight increased [Unknown]
